FAERS Safety Report 8825960 (Version 2)
Quarter: 2012Q4

REPORT INFORMATION
  Report Type: 
  Country: US (occurrence: US)
  Receive Date: 20121005
  Receipt Date: 20121018
  Transmission Date: 20130627
  Serious: Yes (Hospitalization, Other)
  Sender: FDA-Public Use
  Company Number: US-ACTELION-A-NJ2012-72220

PATIENT
  Age: 62 Year
  Sex: Female

DRUGS (2)
  1. VELETRI [Suspect]
     Indication: PULMONARY ARTERIAL HYPERTENSION
     Dosage: 37.8 ng/kg, per min
     Route: 041
     Dates: start: 20110520
  2. ASPIRIN [Concomitant]

REACTIONS (2)
  - Lung squamous cell carcinoma stage IV [Unknown]
  - Pneumonia [Unknown]
